FAERS Safety Report 22230211 (Version 6)
Quarter: 2023Q2

REPORT INFORMATION
  Report Type: Report from Study
  Country: AU (occurrence: AU)
  Receive Date: 20230419
  Receipt Date: 20230522
  Transmission Date: 20230721
  Serious: Yes (Life-Threatening, Hospitalization)
  Sender: FDA-Public Use
  Company Number: AU-JNJFOC-20230133205

PATIENT
  Age: 73 Year
  Sex: Male
  Weight: 84 kg

DRUGS (11)
  1. CILTACABTAGENE AUTOLEUCEL [Suspect]
     Active Substance: CILTACABTAGENE AUTOLEUCEL
     Indication: Plasma cell myeloma
     Route: 042
     Dates: start: 20211123, end: 20211123
  2. DARATUMUMAB [Suspect]
     Active Substance: DARATUMUMAB
     Indication: Plasma cell myeloma
     Route: 058
     Dates: start: 20210907, end: 20211027
  3. CYCLOPHOSPHAMIDE [Concomitant]
     Active Substance: CYCLOPHOSPHAMIDE
     Indication: Plasma cell myeloma
     Route: 042
     Dates: start: 20211118, end: 20211120
  4. FLUDARABINE [Concomitant]
     Active Substance: FLUDARABINE PHOSPHATE
     Indication: Plasma cell myeloma
     Route: 042
     Dates: start: 20211118, end: 20211120
  5. SULFAMETHOXAZOLE\TRIMETHOPRIM [Concomitant]
     Active Substance: SULFAMETHOXAZOLE\TRIMETHOPRIM
     Indication: Prophylaxis
     Dosage: 80/400
     Route: 048
     Dates: start: 20211118
  6. ERGOCALCIFEROL [Concomitant]
     Active Substance: ERGOCALCIFEROL
     Indication: Prophylaxis
     Route: 048
     Dates: start: 20220215
  7. SODIUM PHOSPHATE, MONOBASIC, ANHYDROUS [Concomitant]
     Active Substance: SODIUM PHOSPHATE, MONOBASIC, ANHYDROUS
     Indication: Hypophosphataemia
     Route: 048
     Dates: start: 20220412
  8. MAGNESIUM [Concomitant]
     Active Substance: MAGNESIUM
     Indication: Blood creatine phosphokinase increased
     Route: 048
     Dates: start: 20220731
  9. ZOLEDRONIC ACID [Concomitant]
     Active Substance: ZOLEDRONIC ACID
     Indication: Prophylaxis
     Route: 042
  10. IMMUNOGLOBULIN SSI [Concomitant]
     Indication: Hypogammaglobulinaemia
     Route: 042
  11. PREGABALIN [Concomitant]
     Active Substance: PREGABALIN
     Indication: Sensory loss
     Route: 048
     Dates: start: 20230304

REACTIONS (3)
  - Acute coronary syndrome [Recovered/Resolved]
  - Pyrexia [Recovered/Resolved]
  - Metapneumovirus pneumonia [Recovered/Resolved]

NARRATIVE: CASE EVENT DATE: 20230116
